FAERS Safety Report 18384096 (Version 1)
Quarter: 2020Q4

REPORT INFORMATION
  Report Type: Spontaneous
  Country: US (occurrence: US)
  Receive Date: 20201014
  Receipt Date: 20201014
  Transmission Date: 20210114
  Serious: No
  Sender: FDA-Public Use
  Company Number: US-TEVA-2020-US-1837684

PATIENT
  Sex: Male

DRUGS (1)
  1. CICLOPIROX TEVA [Suspect]
     Active Substance: CICLOPIROX
     Route: 065

REACTIONS (1)
  - Hair colour changes [Unknown]
